FAERS Safety Report 8382848-4 (Version None)
Quarter: 2012Q2

REPORT INFORMATION
  Report Type: 
  Country: None (occurrence: None)
  Receive Date: 20120524
  Receipt Date: 20120509
  Transmission Date: 20120825
  Serious: Yes (Other)
  Sender: FDA-Public Use
  Company Number: US-JNJFOC-20120511792

PATIENT
  Sex: Female

DRUGS (1)
  1. INVEGA SUSTENNA [Suspect]
     Indication: MAJOR DEPRESSION
     Route: 030
     Dates: start: 20120423, end: 20120502

REACTIONS (2)
  - BLOOD PROLACTIN INCREASED [None]
  - OFF LABEL USE [None]
